FAERS Safety Report 20501846 (Version 1)
Quarter: 2022Q1

REPORT INFORMATION
  Report Type: Spontaneous
  Country: US (occurrence: None)
  Receive Date: 20220218
  Receipt Date: 20220218
  Transmission Date: 20220423
  Serious: Yes (Other)
  Sender: FDA-Public Use
  Company Number: None

PATIENT
  Age: 62 Year
  Sex: Male
  Weight: 83.46 kg

DRUGS (2)
  1. TRULICITY [Suspect]
     Active Substance: DULAGLUTIDE
     Indication: Product used for unknown indication
  2. METFORMIN [Suspect]
     Active Substance: METFORMIN HYDROCHLORIDE
     Indication: Product used for unknown indication

REACTIONS (10)
  - Diarrhoea [None]
  - Abdominal pain [None]
  - Pain [None]
  - Feeling abnormal [None]
  - Dehydration [None]
  - Fatigue [None]
  - Bowel movement irregularity [None]
  - Constipation [None]
  - Flatulence [None]
  - Blood electrolytes decreased [None]
